FAERS Safety Report 7034084-1 (Version None)
Quarter: 2010Q4

REPORT INFORMATION
  Report Type: 
  Country: None (occurrence: None)
  Receive Date: 20101007
  Receipt Date: 20100923
  Transmission Date: 20110411
  Serious: Yes (Hospitalization)
  Sender: FDA-Public Use
  Company Number: SA-MYLANLABS-2010S1017454

PATIENT
  Age: 28 Year
  Sex: Male

DRUGS (2)
  1. PHENYTOIN [Suspect]
     Indication: POST-TRAUMATIC EPILEPSY
     Route: 065
  2. LEVETIRACETAM [Concomitant]
     Indication: POST-TRAUMATIC EPILEPSY
     Route: 065

REACTIONS (3)
  - ANTICONVULSANT DRUG LEVEL ABOVE THERAPEUTIC [None]
  - RESPIRATORY ACIDOSIS [None]
  - STATUS EPILEPTICUS [None]
